FAERS Safety Report 20595071 (Version 1)
Quarter: 2022Q1

REPORT INFORMATION
  Report Type: Spontaneous
  Country: US (occurrence: US)
  Receive Date: 20220315
  Receipt Date: 20220315
  Transmission Date: 20220423
  Serious: Yes (Death)
  Sender: FDA-Public Use
  Company Number: US-GW PHARMA-202203USGW01128

PATIENT
  Age: 14 Year
  Sex: Male

DRUGS (4)
  1. EPIDIOLEX [Suspect]
     Active Substance: CANNABIDIOL
     Indication: Lennox-Gastaut syndrome
     Dosage: 120 MILLIGRAM, BID FOR 1 WEEK
     Dates: start: 202202, end: 202202
  2. EPIDIOLEX [Suspect]
     Active Substance: CANNABIDIOL
     Indication: Epilepsy
     Dosage: 230 MILLIGRAM, BID FOR 1 WEEK
     Dates: start: 202202, end: 202202
  3. EPIDIOLEX [Suspect]
     Active Substance: CANNABIDIOL
     Indication: Status epilepticus
     Dosage: 350 MILLIGRAM, BID FOR 1 WEEK
     Dates: start: 202202, end: 202202
  4. EPIDIOLEX [Suspect]
     Active Substance: CANNABIDIOL
     Dosage: 460 MILLIGRAM, BID FOR 1 WEEK
     Dates: start: 202202

REACTIONS (1)
  - Death [Fatal]

NARRATIVE: CASE EVENT DATE: 20220226
